FAERS Safety Report 10572014 (Version 2)
Quarter: 2014Q4

REPORT INFORMATION
  Report Type: Spontaneous
  Country: LU (occurrence: LU)
  Receive Date: 20141107
  Receipt Date: 20141121
  Transmission Date: 20150529
  Serious: Yes (Hospitalization, Other)
  Sender: FDA-Public Use
  Company Number: LU-AMGEN-LUXSP2014085693

PATIENT
  Age: 69 Year
  Sex: Male

DRUGS (1)
  1. XGEVA [Suspect]
     Active Substance: DENOSUMAB
     Indication: PRODUCT USED FOR UNKNOWN INDICATION
     Dosage: UNK
     Route: 065
     Dates: start: 201405

REACTIONS (1)
  - Prostatic obstruction [Recovering/Resolving]

NARRATIVE: CASE EVENT DATE: 20141027
